FAERS Safety Report 25604401 (Version 1)
Quarter: 2025Q3

REPORT INFORMATION
  Report Type: Report from Study
  Country: US (occurrence: US)
  Receive Date: 20250725
  Receipt Date: 20250725
  Transmission Date: 20251021
  Serious: No
  Sender: SUNOVION
  Company Number: US-SUMITOMO PHARMA SWITZERLAND GMBH-2025SPA008973

PATIENT

DRUGS (20)
  1. ORGOVYX [Suspect]
     Active Substance: RELUGOLIX
     Indication: Prostate cancer
     Route: 048
  2. ALPHA LIPOIC ACID [Concomitant]
     Active Substance: .ALPHA.-LIPOIC ACID
     Route: 065
  3. VITAMIN B COMPLEX [Concomitant]
     Active Substance: CYANOCOBALAMIN\DEXPANTHENOL\NIACINAMIDE\PYRIDOXINE HYDROCHLORIDE\RIBOFLAVIN 5^-PHOSPHATE SODIUM\THIA
     Route: 065
  4. CREATINE [Concomitant]
     Active Substance: CREATINE
     Route: 065
  5. CRESTOR [Concomitant]
     Active Substance: ROSUVASTATIN CALCIUM
     Route: 065
  6. ENTYVIO [Concomitant]
     Active Substance: VEDOLIZUMAB
     Route: 065
  7. FINASTERIDE [Concomitant]
     Active Substance: FINASTERIDE
     Route: 065
  8. GLUCOSAMINE [Concomitant]
     Active Substance: GLUCOSAMINE
     Route: 065
  9. GLYCINE [Concomitant]
     Active Substance: GLYCINE
     Route: 065
  10. LYSINE [Concomitant]
     Active Substance: LYSINE
     Route: 065
  11. MAGNESIUM [Concomitant]
     Active Substance: MAGNESIUM
     Route: 065
  12. Nac [Concomitant]
     Route: 065
  13. NITRIC OXIDE [Concomitant]
     Active Substance: NITRIC OXIDE
     Route: 065
  14. Pharmagaba [Concomitant]
     Route: 065
  15. QUERCETIN [Concomitant]
     Active Substance: QUERCETIN
     Route: 065
  16. TADALAFIL [Concomitant]
     Active Substance: TADALAFIL
     Route: 065
  17. TAURINE [Concomitant]
     Active Substance: TAURINE
     Route: 065
  18. UBIQUINOL [Concomitant]
     Active Substance: UBIQUINOL
     Route: 065
  19. VITAMIN D3 [Concomitant]
     Active Substance: CHOLECALCIFEROL
     Route: 065
  20. MENAQUINONE 6 [Concomitant]
     Active Substance: MENAQUINONE 6
     Route: 065

REACTIONS (2)
  - Hot flush [Unknown]
  - Incorrect dose administered [Recovered/Resolved]
